FAERS Safety Report 8802638 (Version 2)
Quarter: 2015Q2

REPORT INFORMATION
  Report Type: Report from Study
  Country: US (occurrence: US)
  Receive Date: 20120921
  Receipt Date: 20150623
  Transmission Date: 20150821
  Serious: Yes (Death)
  Sender: FDA-Public Use
  Company Number: US-ROCHE-1123664

PATIENT
  Sex: Male
  Weight: 65.83 kg

DRUGS (5)
  1. ALDACTONE (UNITED STATES) [Concomitant]
     Route: 048
  2. TARCEVA [Suspect]
     Active Substance: ERLOTINIB HYDROCHLORIDE
     Indication: HEPATIC CANCER
     Route: 048
     Dates: start: 20080620
  3. ALDACTONE (UNITED STATES) [Concomitant]
     Route: 048
  4. AVASTIN [Suspect]
     Active Substance: BEVACIZUMAB
     Indication: HEPATIC CANCER
     Route: 042
     Dates: start: 20080620
  5. NEXAVAR [Concomitant]
     Active Substance: SORAFENIB

REACTIONS (10)
  - Diarrhoea [Unknown]
  - Death [Fatal]
  - Anaemia [Unknown]
  - Dysgeusia [Unknown]
  - Off label use [Unknown]
  - Rash [Unknown]
  - Oedema peripheral [Unknown]
  - Asthenia [Unknown]
  - Ascites [Unknown]
  - Fatigue [Unknown]
